FAERS Safety Report 7574536-9 (Version None)
Quarter: 2011Q2

REPORT INFORMATION
  Report Type: 
  Country: None (occurrence: None)
  Receive Date: 20110627
  Receipt Date: 20110610
  Transmission Date: 20111010
  Serious: Yes (Hospitalization)
  Sender: FDA-Public Use
  Company Number: US-BAYER-2011-050874

PATIENT
  Age: 77 Year
  Sex: Female

DRUGS (8)
  1. ALEVE (CAPLET) [Suspect]
     Dosage: BOTTLE COUNT 200CT
     Route: 048
     Dates: start: 20110610, end: 20110610
  2. ALTACE [Concomitant]
  3. FOLIC ACID [Concomitant]
  4. SEROQUEL [Concomitant]
  5. XANAX [Concomitant]
  6. DEPAKOTE [Concomitant]
  7. RYTHMOL [Concomitant]
  8. NORVASC [Concomitant]

REACTIONS (2)
  - SOMNOLENCE [None]
  - LETHARGY [None]
